FAERS Safety Report 5600198-3 (Version None)
Quarter: 2008Q1

REPORT INFORMATION
  Report Type: 
  Country: None (occurrence: None)
  Receive Date: 20080117
  Receipt Date: 20080117
  Transmission Date: 20080703
  Serious: Yes (Death)
  Sender: FDA-Public Use
  Company Number: None

PATIENT
  Age: 45 Year
  Sex: Female
  Weight: 63.5036 kg

DRUGS (1)
  1. ROBUTISIN DM [Suspect]
     Indication: COUGH
     Dates: start: 20071001, end: 20071009

REACTIONS (1)
  - MYOCARDIAL INFARCTION [None]
